FAERS Safety Report 26118809 (Version 1)
Quarter: 2025Q4

REPORT INFORMATION
  Report Type: Spontaneous
  Country: US (occurrence: US)
  Receive Date: 20251203
  Receipt Date: 20251203
  Transmission Date: 20260118
  Serious: No
  Sender: ROCHE
  Company Number: US-ROCHE-10000445392

PATIENT
  Weight: 129.27 kg

DRUGS (1)
  1. ACTEMRA [Suspect]
     Active Substance: TOCILIZUMAB
     Indication: Rheumatoid arthritis
     Route: 065

REACTIONS (11)
  - Dizziness [Unknown]
  - Feeling abnormal [Unknown]
  - Myalgia [Unknown]
  - Fatigue [Unknown]
  - Brain fog [Unknown]
  - Headache [Unknown]
  - Heart rate increased [Unknown]
  - Tremor [Unknown]
  - Asthenia [Unknown]
  - Gastrointestinal disorder [Unknown]
  - Pain [Unknown]

NARRATIVE: CASE EVENT DATE: 20251101
